FAERS Safety Report 22041809 (Version 7)
Quarter: 2024Q2

REPORT INFORMATION
  Report Type: Spontaneous
  Country: US (occurrence: US)
  Receive Date: 20230227
  Receipt Date: 20240517
  Transmission Date: 20240717
  Serious: No
  Sender: FDA-Public Use
  Company Number: US-PFIZER INC-PV202300034384

PATIENT
  Age: 75 Year
  Sex: Female

DRUGS (3)
  1. IBRANCE [Suspect]
     Active Substance: PALBOCICLIB
     Dosage: 100 MG, CYCLIC, DAILY FOR 21 DAYS 7 DAYS OFF
  2. IBRANCE [Suspect]
     Active Substance: PALBOCICLIB
     Dosage: 75 MG, CYCLIC, DAILY TAKE WITH OR WITHOUT FOOD ON DAYS 1-21 OF 28 DAY CYCLE
     Route: 048
  3. IBRANCE [Suspect]
     Active Substance: PALBOCICLIB
     Dosage: 75 MG, CYCLIC, DAILY. TAKE WITH OR WITHOUT FOOD ON DAYS 1-14 OF 21 DAY CYCLE
     Route: 048

REACTIONS (4)
  - Illness [Unknown]
  - Blood test abnormal [Unknown]
  - Therapeutic response unexpected [Unknown]
  - Off label use [Unknown]
